FAERS Safety Report 16713017 (Version 1)
Quarter: 2019Q3

REPORT INFORMATION
  Report Type: Spontaneous
  Country: GB (occurrence: GB)
  Receive Date: 20190817
  Receipt Date: 20190817
  Transmission Date: 20191004
  Serious: Yes (Other)
  Sender: FDA-Public Use
  Company Number: GB-ACCORD-151579

PATIENT
  Age: 54 Year
  Sex: Female
  Weight: 68 kg

DRUGS (4)
  1. BUDESONIDE. [Concomitant]
     Active Substance: BUDESONIDE
     Dosage: BREATH-ACUTATED DRY POWDER INHALAR
  2. LISINOPRIL. [Suspect]
     Active Substance: LISINOPRIL
     Indication: ESSENTIAL HYPERTENSION
     Route: 048
     Dates: start: 20181115, end: 20190712
  3. ESTRIOL [Concomitant]
     Active Substance: ESTRIOL
     Dosage: INTRAVAGINAL
  4. LANSOPRAZOLE. [Concomitant]
     Active Substance: LANSOPRAZOLE

REACTIONS (2)
  - Hyponatraemia [Unknown]
  - Aphasia [Recovered/Resolved]

NARRATIVE: CASE EVENT DATE: 20181115
